FAERS Safety Report 4640248-4 (Version None)
Quarter: 2005Q2

REPORT INFORMATION
  Report Type: 
  Country: None (occurrence: None)
  Receive Date: 20050420
  Receipt Date: 20040819
  Transmission Date: 20051028
  Serious: Yes (Hospitalization, Other)
  Sender: FDA-Public Use
  Company Number: US-GLAXOSMITHKLINE-A0524014A

PATIENT
  Age: 14 Year
  Sex: Female
  Weight: 55.5 kg

DRUGS (1)
  1. PAXIL [Suspect]
     Indication: ANXIETY
     Route: 048
     Dates: start: 20030508

REACTIONS (12)
  - ABNORMAL BEHAVIOUR [None]
  - AGGRESSION [None]
  - AGITATION [None]
  - CONFUSIONAL STATE [None]
  - DRUG WITHDRAWAL SYNDROME [None]
  - EPISTAXIS [None]
  - IMPULSIVE BEHAVIOUR [None]
  - PARAESTHESIA [None]
  - PERSONALITY CHANGE [None]
  - SELF MUTILATION [None]
  - SUICIDE ATTEMPT [None]
  - TREMOR [None]
